FAERS Safety Report 7609431-X (Version None)
Quarter: 2011Q3

REPORT INFORMATION
  Report Type: 
  Country: None (occurrence: None)
  Receive Date: 20110713
  Receipt Date: 20110713
  Transmission Date: 20111222
  Serious: Yes (Life-Threatening)
  Sender: FDA-Public Use
  Company Number: None

PATIENT
  Sex: Female
  Weight: 61.4 kg

DRUGS (9)
  1. PAXIL [Concomitant]
  2. FUROSEMIDE [Concomitant]
  3. ENALAPRIL MALEATE [Concomitant]
  4. ASPIRIN [Concomitant]
  5. LORTAB [Concomitant]
  6. ENALAPRIL MALEATE [Suspect]
     Indication: BLOOD PRESSURE INADEQUATELY CONTROLLED
     Dosage: ENALAPRIL 10 MG BID ORAL (047)
     Route: 048
     Dates: start: 20110228, end: 20110302
  7. FERROUS SULFATE TAB [Concomitant]
  8. METOPROLOL TARTRATE [Concomitant]
  9. ENALAPRIL MALEATE [Suspect]
     Dosage: ENALAPRIL 10 MG DAILY ORAL (047)
     Route: 048
     Dates: start: 20110303, end: 20110305

REACTIONS (4)
  - ACUTE HEPATIC FAILURE [None]
  - HEPATITIS [None]
  - UNRESPONSIVE TO STIMULI [None]
  - SEPTIC SHOCK [None]
